FAERS Safety Report 6047516-2 (Version None)
Quarter: 2009Q1

REPORT INFORMATION
  Report Type: 
  Country: None (occurrence: None)
  Receive Date: 20090122
  Receipt Date: 20090119
  Transmission Date: 20090719
  Serious: Yes (Death)
  Sender: FDA-Public Use
  Company Number: US-ABBOTT-09P-163-0498698-00

PATIENT
  Sex: Male
  Weight: 72.64 kg

DRUGS (9)
  1. ZEMPLAR [Suspect]
     Indication: HYPERPARATHYROIDISM
     Dates: start: 20070119, end: 20090101
  2. ASPIRIN [Concomitant]
     Indication: CARDIAC DISORDER
  3. CARVEDILOL [Concomitant]
     Indication: CARDIAC DISORDER
  4. LASIX [Concomitant]
     Indication: CARDIAC FAILURE CONGESTIVE
  5. METOPROLOL TARTRATE [Concomitant]
     Indication: CARDIAC FAILURE CONGESTIVE
  6. NEPHROVITE [Concomitant]
     Indication: DRUG USE FOR UNKNOWN INDICATION
  7. AVODART [Concomitant]
     Indication: PROSTATOMEGALY
  8. UROXATAL [Concomitant]
     Indication: PROSTATOMEGALY
  9. KLOR-CON [Concomitant]
     Indication: BLOOD POTASSIUM DECREASED
     Dosage: 0.5 TAB

REACTIONS (7)
  - ASCITES [None]
  - CARDIAC ARREST [None]
  - CARDIAC FAILURE CONGESTIVE [None]
  - CORONARY ARTERY DISEASE [None]
  - PERICARDIAL EFFUSION [None]
  - RENAL FAILURE [None]
  - RESPIRATORY FAILURE [None]
